FAERS Safety Report 19272589 (Version 2)
Quarter: 2021Q4

REPORT INFORMATION
  Report Type: Spontaneous
  Country: GB (occurrence: GB)
  Receive Date: 20210519
  Receipt Date: 20211202
  Transmission Date: 20220303
  Serious: Yes (Other)
  Sender: FDA-Public Use
  Company Number: GB-MHRA-EYC 00250047

PATIENT
  Age: 48 Year
  Sex: Female
  Weight: 68.94 kg

DRUGS (1)
  1. FLUOXETINE [Suspect]
     Active Substance: FLUOXETINE HYDROCHLORIDE
     Indication: Anxiety
     Dosage: 20 MILLIGRAM, UNK
     Route: 048
     Dates: start: 20210419, end: 20210424

REACTIONS (5)
  - Illness [Unknown]
  - Fatigue [Recovered/Resolved]
  - Tremor [Unknown]
  - Hypokinesia [Unknown]
  - Injury [Unknown]

NARRATIVE: CASE EVENT DATE: 20210422
